FAERS Safety Report 4375403-4 (Version None)
Quarter: 2004Q2

REPORT INFORMATION
  Report Type: 
  Country: None (occurrence: None)
  Receive Date: 20040607
  Receipt Date: 20040531
  Transmission Date: 20050107
  Serious: Yes (Other)
  Sender: FDA-Public Use
  Company Number: 2004215307US

PATIENT
  Sex: Male

DRUGS (2)
  1. ZYVOX [Suspect]
     Dosage: 600 MG, BID, IV
     Route: 042
  2. DILANTIN [Concomitant]

REACTIONS (1)
  - CONVULSION [None]
